FAERS Safety Report 15582503 (Version 1)
Quarter: 2018Q4

REPORT INFORMATION
  Report Type: Spontaneous
  Country: US (occurrence: US)
  Receive Date: 20181104
  Receipt Date: 20181104
  Transmission Date: 20190205
  Serious: Yes (Other)
  Sender: FDA-Public Use
  Company Number: None

PATIENT
  Age: 57 Year
  Sex: Female
  Weight: 74.25 kg

DRUGS (14)
  1. TOPIRAMATE. [Concomitant]
     Active Substance: TOPIRAMATE
  2. LEVOTHYROXINE. [Concomitant]
     Active Substance: LEVOTHYROXINE
  3. SEROQUEL [Concomitant]
     Active Substance: QUETIAPINE FUMARATE
  4. OXYBUTYNIN ER [Concomitant]
     Active Substance: OXYBUTYNIN
  5. ZOLPIDEM ER (AMBIEN CR) [Concomitant]
  6. XANAX [Concomitant]
     Active Substance: ALPRAZOLAM
  7. PROMETHAZINE [Concomitant]
     Active Substance: PROMETHAZINE\PROMETHAZINE HYDROCHLORIDE
  8. TRAMADOL. [Concomitant]
     Active Substance: TRAMADOL
  9. PHENAZOPYRD100MG TAB ECI [Suspect]
     Active Substance: PHENAZOPYRIDINE
     Indication: LOWER URINARY TRACT SYMPTOMS
     Dosage: ?          QUANTITY:15 TABLET(S);?
     Route: 048
     Dates: start: 20181103, end: 20181103
  10. PRISTIQ EXTENDED-RELEASE [Concomitant]
     Active Substance: DESVENLAFAXINE SUCCINATE
  11. ESTRACE [Concomitant]
     Active Substance: ESTRADIOL
  12. NODOLOR (MIDRIN) [Concomitant]
  13. METHYL FOLATE [Concomitant]
  14. ADDERALL ER [Concomitant]

REACTIONS (2)
  - Drug ineffective [None]
  - Chromaturia [None]

NARRATIVE: CASE EVENT DATE: 20181103
